FAERS Safety Report 6189721-0 (Version None)
Quarter: 2009Q2

REPORT INFORMATION
  Report Type: 
  Country: None (occurrence: None)
  Receive Date: 20090514
  Receipt Date: 20090504
  Transmission Date: 20091009
  Serious: Yes (Other)
  Sender: FDA-Public Use
  Company Number: FR-ROCHE-631348

PATIENT
  Age: 33 Year
  Sex: Female

DRUGS (5)
  1. MYCOPHENOLATE MOFETIL [Suspect]
     Route: 065
  2. RITUXIMAB [Suspect]
     Dosage: FORM: INFUSION
     Route: 065
  3. RITUXIMAB [Suspect]
     Dosage: SLOWER INFUSION
     Route: 065
  4. CYCLOPHOSPHAMIDE [Suspect]
     Route: 065
  5. AZATHIOPRINE [Suspect]
     Route: 065

REACTIONS (5)
  - ALLERGIC GRANULOMATOUS ANGIITIS [None]
  - BRONCHOSPASM [None]
  - CATARACT [None]
  - MYOPATHY [None]
  - TREATMENT FAILURE [None]
